FAERS Safety Report 21799187 (Version 3)
Quarter: 2023Q2

REPORT INFORMATION
  Report Type: Report from Study
  Country: US (occurrence: US)
  Receive Date: 20221230
  Receipt Date: 20230428
  Transmission Date: 20230722
  Serious: Yes (Hospitalization)
  Sender: FDA-Public Use
  Company Number: US-ABBVIE-4254253

PATIENT
  Age: 49 Year
  Sex: Female
  Weight: 99.336 kg

DRUGS (6)
  1. HUMIRA [Suspect]
     Active Substance: ADALIMUMAB
     Indication: Ankylosing spondylitis
     Route: 058
     Dates: start: 20221018, end: 20221129
  2. HUMIRA [Suspect]
     Active Substance: ADALIMUMAB
     Route: 058
  3. GABAPENTIN [Concomitant]
     Active Substance: GABAPENTIN
     Indication: Product used for unknown indication
  4. Oxeabenzapine [Concomitant]
     Indication: Product used for unknown indication
     Dosage: FREQUENCY TEXT: BID
     Route: 048
  5. Hudrooxochloroquin [Concomitant]
     Indication: Product used for unknown indication
     Dosage: FREQUENCY TEXT: BID
     Route: 048
  6. OMEPRAZOLE [Concomitant]
     Active Substance: OMEPRAZOLE
     Indication: Product used for unknown indication
     Dosage: FREQUENCY TEXT: BID
     Route: 048

REACTIONS (4)
  - Submandibular abscess [Recovered/Resolved]
  - Submandibular abscess [Recovered/Resolved]
  - White blood cell count decreased [Recovering/Resolving]
  - White blood cell count decreased [Recovered/Resolved]

NARRATIVE: CASE EVENT DATE: 20221011
